FAERS Safety Report 9359690 (Version 1)
Quarter: 2013Q2

REPORT INFORMATION
  Report Type: Spontaneous
  Country: ES (occurrence: ES)
  Receive Date: 20130620
  Receipt Date: 20130620
  Transmission Date: 20140414
  Serious: Yes (Other)
  Sender: FDA-Public Use
  Company Number: ES-ABBOTT-13P-144-1104208-00

PATIENT
  Age: 56 Year
  Sex: Male

DRUGS (3)
  1. HUMIRA [Suspect]
     Indication: COLITIS ULCERATIVE
     Route: 058
     Dates: start: 20130228, end: 20130417
  2. HUMIRA [Suspect]
     Route: 058
     Dates: start: 20130417
  3. HUMIRA [Suspect]
     Route: 058

REACTIONS (2)
  - Device failure [Unknown]
  - Drug ineffective [Unknown]
